FAERS Safety Report 13364358 (Version 1)
Quarter: 2017Q1

REPORT INFORMATION
  Report Type: Spontaneous
  Country: US (occurrence: US)
  Receive Date: 20170323
  Receipt Date: 20170323
  Transmission Date: 20170429
  Serious: No
  Sender: FDA-Public Use
  Company Number: US-ROCHE-1338614

PATIENT
  Age: 38 Year
  Sex: Female
  Weight: 88.08 kg

DRUGS (11)
  1. XOLAIR [Suspect]
     Active Substance: OMALIZUMAB
     Indication: ASTHMA
     Dosage: MOST RECENT INJECTION WAS IN MARCH 2014
     Route: 058
     Dates: start: 20131220
  2. SKELAXIN [Concomitant]
     Active Substance: METAXALONE
     Dosage: AS NEEDED
     Route: 048
  3. ULTRAM [Concomitant]
     Active Substance: TRAMADOL HYDROCHLORIDE
     Route: 048
  4. MOTRIN [Concomitant]
     Active Substance: IBUPROFEN
     Dosage: AS NEEDED
     Route: 048
  5. PREDNISONE. [Concomitant]
     Active Substance: PREDNISONE
     Route: 065
  6. PULMICORT TURBUHALER [Concomitant]
     Active Substance: BUDESONIDE
     Route: 065
  7. LYRICA [Concomitant]
     Active Substance: PREGABALIN
     Dosage: AS REQUIRED
     Route: 048
  8. NASONEX [Concomitant]
     Active Substance: MOMETASONE FUROATE
     Dosage: EACH NOSTRIL
     Route: 045
  9. VICODIN [Concomitant]
     Active Substance: ACETAMINOPHEN\HYDROCODONE BITARTRATE
     Dosage: 7.5 - 325 (UNIT NOT REPORTED)
     Route: 048
  10. MORPHINE SULFATE. [Concomitant]
     Active Substance: MORPHINE SULFATE
     Dosage: AS NEEDED
     Route: 048
  11. FLEXERIL [Concomitant]
     Active Substance: CYCLOBENZAPRINE HYDROCHLORIDE
     Dosage: AS NEEDED
     Route: 048

REACTIONS (3)
  - Vision blurred [Recovered/Resolved]
  - Asthma [Unknown]
  - Fatigue [Unknown]

NARRATIVE: CASE EVENT DATE: 20131220
